FAERS Safety Report 10431040 (Version 1)
Quarter: 2014Q1

REPORT INFORMATION
  Report Type: Spontaneous
  Country: US (occurrence: None)
  Receive Date: 20130503
  Receipt Date: 20130503
  Transmission Date: 20141002
  Serious: No
  Sender: FDA-Public Use
  Company Number: 1000041682

PATIENT
  Age: 76 Year
  Sex: Male

DRUGS (5)
  1. DALIRESP [Suspect]
     Indication: CHRONIC OBSTRUCTIVE PULMONARY DISEASE
     Dosage: 500 MCG (500 MCG, 1 IN 1 D
     Dates: start: 20130111
  2. PULMICORT (BUDESONIDE) [Concomitant]
  3. ALBUTEROL [Concomitant]
  4. SPIRIVA (TIOTROPIUM BROMIDE) [Concomitant]
  5. OXYGEN [Concomitant]

REACTIONS (2)
  - Diarrhoea [None]
  - Fatigue [None]
